FAERS Safety Report 6113150-9 (Version None)
Quarter: 2009Q1

REPORT INFORMATION
  Report Type: 
  Country: None (occurrence: None)
  Receive Date: 20090312
  Receipt Date: 20090305
  Transmission Date: 20090719
  Serious: Yes (Other)
  Sender: FDA-Public Use
  Company Number: GB-ELI_LILLY_AND_COMPANY-GB200903001510

PATIENT
  Age: 15 Year
  Sex: Female

DRUGS (1)
  1. PROZAC [Suspect]

REACTIONS (5)
  - ABNORMAL BEHAVIOUR [None]
  - CENTRAL NERVOUS SYSTEM LESION [None]
  - MOUTH ULCERATION [None]
  - RASH [None]
  - SWELLING FACE [None]
